FAERS Safety Report 7251727-8 (Version None)
Quarter: 2011Q1

REPORT INFORMATION
  Report Type: 
  Country: None (occurrence: None)
  Receive Date: 20110128
  Receipt Date: 20110124
  Transmission Date: 20110831
  Serious: Yes (Disabling, Other)
  Sender: FDA-Public Use
  Company Number: US-MERCK-1008USA00566

PATIENT
  Age: 61 Year
  Sex: Female

DRUGS (2)
  1. BONIVA [Suspect]
     Route: 065
     Dates: start: 20070301, end: 20081201
  2. FOSAMAX [Suspect]
     Indication: OSTEOPOROSIS
     Route: 048
     Dates: start: 20010606, end: 20070101

REACTIONS (4)
  - OSTEITIS [None]
  - OSTEONECROSIS OF JAW [None]
  - OSTEOMYELITIS [None]
  - FISTULA DISCHARGE [None]
